APPROVED DRUG PRODUCT: OLPRUVA
Active Ingredient: SODIUM PHENYLBUTYRATE
Strength: 5GM/PACKET
Dosage Form/Route: FOR SUSPENSION;ORAL
Application: N214860 | Product #004
Applicant: ACER THERAPEUTICS INC
Approved: Dec 22, 2022 | RLD: Yes | RS: Yes | Type: RX

PATENTS:
Patent 11202767 | Expires: Oct 17, 2036
Patent 11154521 | Expires: Oct 17, 2036
Patent 11433041 | Expires: Oct 17, 2036